FAERS Safety Report 6216661-0 (Version None)
Quarter: 2009Q2

REPORT INFORMATION
  Report Type: 
  Country: None (occurrence: None)
  Receive Date: 20090605
  Receipt Date: 20090601
  Transmission Date: 20091009
  Serious: Yes (Other)
  Sender: FDA-Public Use
  Company Number: DE-BRISTOL-MYERS SQUIBB COMPANY-14644868

PATIENT
  Sex: Female

DRUGS (3)
  1. STAVUDINE [Suspect]
     Indication: HIV INFECTION
     Dates: start: 20020901
  2. LAMIVUDINE [Suspect]
     Indication: HIV INFECTION
     Dates: start: 20020901
  3. NELFINAVIR [Suspect]
     Indication: HIV INFECTION
     Dates: start: 20020901

REACTIONS (3)
  - DRUG RESISTANCE [None]
  - LIVE BIRTH [None]
  - PREGNANCY [None]
